FAERS Safety Report 23935592 (Version 1)
Quarter: 2024Q2

REPORT INFORMATION
  Report Type: Spontaneous
  Country: US (occurrence: US)
  Receive Date: 20240604
  Receipt Date: 20240604
  Transmission Date: 20240715
  Serious: No
  Sender: FDA-Public Use
  Company Number: US-BAUSCHBL-2024BNL027956

PATIENT
  Age: 71 Year
  Sex: Female
  Weight: 64.86 kg

DRUGS (1)
  1. DEXAMETHASONE\NEOMYCIN\POLYMYXIN B SULFATE [Suspect]
     Active Substance: DEXAMETHASONE\NEOMYCIN\POLYMYXIN B SULFATE
     Indication: Infection
     Route: 047
     Dates: start: 20240523, end: 20240528

REACTIONS (2)
  - Burning sensation [Unknown]
  - Vision blurred [Unknown]

NARRATIVE: CASE EVENT DATE: 20240501
